FAERS Safety Report 25603091 (Version 1)
Quarter: 2025Q3

REPORT INFORMATION
  Report Type: Spontaneous
  Country: US (occurrence: US)
  Receive Date: 20250724
  Receipt Date: 20250724
  Transmission Date: 20251021
  Serious: No
  Sender: ALEXION PHARMACEUTICALS
  Company Number: US-AstraZeneca-CH-00916704A

PATIENT
  Sex: Female

DRUGS (2)
  1. TAGRISSO [Suspect]
     Active Substance: OSIMERTINIB
     Indication: Product used for unknown indication
     Route: 065
  2. SPORANOX [Concomitant]
     Active Substance: ITRACONAZOLE
     Route: 065

REACTIONS (2)
  - Onychomycosis [Unknown]
  - Nail disorder [Unknown]
